FAERS Safety Report 23470361 (Version 1)
Quarter: 2024Q1

REPORT INFORMATION
  Report Type: Spontaneous
  Country: CA (occurrence: None)
  Receive Date: 20240202
  Receipt Date: 20240202
  Transmission Date: 20240410
  Serious: Yes (Other)
  Sender: FDA-Public Use
  Company Number: 2024A026846

PATIENT
  Age: 63 Year
  Sex: Female
  Weight: 59.8 kg

DRUGS (2)
  1. ESOMEPRAZOLE [Suspect]
     Active Substance: ESOMEPRAZOLE
     Indication: Dyspepsia
     Dosage: UNK, QD
     Route: 048
  2. ESOMEPRAZOLE [Suspect]
     Active Substance: ESOMEPRAZOLE
     Indication: Cystitis interstitial
     Dosage: UNK, QD
     Route: 048

REACTIONS (2)
  - Bladder pain [Recovered/Resolved]
  - Product substitution issue [Recovered/Resolved]
